FAERS Safety Report 10043483 (Version 3)
Quarter: 2014Q2

REPORT INFORMATION
  Report Type: Spontaneous
  Country: DE (occurrence: DE)
  Receive Date: 20140328
  Receipt Date: 20140507
  Transmission Date: 20141212
  Serious: Yes (Death, Life-Threatening, Hospitalization)
  Sender: FDA-Public Use
  Company Number: DE-ROCHE-1372374

PATIENT
  Age: 50 Year
  Sex: Female
  Weight: 87 kg

DRUGS (12)
  1. AVASTIN [Suspect]
     Indication: OVARIAN CANCER
     Dosage: LAST ADMINISTRATION PRIOR TO EVENT ON 11/FEB/2014
     Route: 042
     Dates: start: 20131203, end: 20140204
  2. GEMCITABINE [Suspect]
     Indication: OVARIAN CANCER
     Dosage: 10 ADMINISTRATIONS
     Route: 042
     Dates: start: 20131112, end: 20140211
  3. PANTOZOL (GERMANY) [Concomitant]
     Route: 048
  4. CYMBALTA [Concomitant]
     Route: 048
  5. GABAPENTIN [Concomitant]
     Indication: PAIN
     Route: 048
  6. QUETIAPINE [Concomitant]
     Indication: SLEEP DISORDER
     Route: 048
  7. FUROSEMIDE [Concomitant]
     Route: 048
  8. THYRONAJOD [Concomitant]
     Route: 048
  9. CLEXANE [Concomitant]
     Indication: THROMBOSIS PROPHYLAXIS
     Route: 058
  10. CETIRIZIN [Concomitant]
     Route: 065
  11. IBUPROFEN [Concomitant]
     Indication: PAIN
     Route: 048
  12. TAZOBACTAM [Concomitant]

REACTIONS (9)
  - Renal failure acute [Fatal]
  - Urosepsis [Fatal]
  - Cardiopulmonary failure [Fatal]
  - Congestive cardiomyopathy [Unknown]
  - Ejection fraction decreased [Unknown]
  - Dyspnoea [Unknown]
  - Respiratory failure [Unknown]
  - General physical condition abnormal [Unknown]
  - Infection [Recovered/Resolved]
